FAERS Safety Report 21444669 (Version 1)
Quarter: 2022Q4

REPORT INFORMATION
  Report Type: Spontaneous
  Country: US (occurrence: US)
  Receive Date: 20221012
  Receipt Date: 20221012
  Transmission Date: 20230113
  Serious: No
  Sender: FDA-Public Use
  Company Number: ENDG22-03453

PATIENT
  Sex: Female

DRUGS (1)
  1. CHOLESTYRAMINE [Suspect]
     Active Substance: CHOLESTYRAMINE
     Indication: Irritable bowel syndrome
     Dosage: 2 DF, BID (TWO SCOOPS)
     Route: 048

REACTIONS (5)
  - Blood cholesterol increased [Unknown]
  - Off label use [Unknown]
  - Intentional product use issue [Unknown]
  - Product taste abnormal [Unknown]
  - Product substitution issue [Unknown]
